FAERS Safety Report 18503053 (Version 2)
Quarter: 2020Q4

REPORT INFORMATION
  Report Type: Spontaneous
  Country: ES (occurrence: ES)
  Receive Date: 20201113
  Receipt Date: 20201117
  Transmission Date: 20210114
  Serious: Yes (Life-Threatening, Hospitalization)
  Sender: FDA-Public Use
  Company Number: ES-AMERICAN REGENT INC-2020002414

PATIENT
  Age: 87 Year
  Sex: Female

DRUGS (3)
  1. LOPID [Suspect]
     Active Substance: GEMFIBROZIL
     Indication: DYSLIPIDAEMIA
     Dosage: 30 TABLETS (900 MG,1 IN 1 D)
     Route: 048
     Dates: start: 201105, end: 20200921
  2. FERINJECT [Suspect]
     Active Substance: FERRIC CARBOXYMALTOSE
     Indication: ANAEMIA
     Dosage: 1X20 ML VIAL (1000 MG, 1 IN 1 D)
     Route: 042
     Dates: start: 20200918, end: 20200918
  3. DEPRAX                             /00447702/ [Concomitant]
     Active Substance: TRAZODONE HYDROCHLORIDE
     Indication: MIXED ANXIETY AND DEPRESSIVE DISORDER
     Dosage: 30 TABLETS (100 MG, 1 IN 1 D)
     Route: 048
     Dates: start: 201711, end: 20200921

REACTIONS (3)
  - Acute kidney injury [Recovered/Resolved]
  - Hyperkalaemia [Recovered/Resolved]
  - Rhabdomyolysis [Recovered/Resolved]

NARRATIVE: CASE EVENT DATE: 20200919
